FAERS Safety Report 6258722-6 (Version None)
Quarter: 2009Q3

REPORT INFORMATION
  Report Type: 
  Country: None (occurrence: None)
  Receive Date: 20090707
  Receipt Date: 20090630
  Transmission Date: 20100115
  Serious: Yes (Other)
  Sender: FDA-Public Use
  Company Number: B0562082A

PATIENT
  Sex: Female
  Weight: 82 kg

DRUGS (1)
  1. HYCAMTIN [Suspect]
     Route: 042
     Dates: start: 20090128

REACTIONS (4)
  - COUGH [None]
  - DYSPNOEA [None]
  - HYPOXIA [None]
  - RESPIRATORY DEPTH DECREASED [None]
